FAERS Safety Report 7704321-6 (Version None)
Quarter: 2011Q3

REPORT INFORMATION
  Report Type: 
  Country: None (occurrence: None)
  Receive Date: 20110823
  Receipt Date: 20110819
  Transmission Date: 20111222
  Serious: Yes (Death, Hospitalization)
  Sender: FDA-Public Use
  Company Number: PHHY2011DK42840

PATIENT
  Sex: Female

DRUGS (2)
  1. OXYGEN [Concomitant]
  2. ONBREZ [Suspect]
     Indication: CHRONIC OBSTRUCTIVE PULMONARY DISEASE
     Dosage: UNK
     Dates: start: 20110101, end: 20110401

REACTIONS (2)
  - DISEASE PROGRESSION [None]
  - ATRIOVENTRICULAR BLOCK SECOND DEGREE [None]
